FAERS Safety Report 4413672-2 (Version None)
Quarter: 2004Q2

REPORT INFORMATION
  Report Type: 
  Country: None (occurrence: None)
  Receive Date: 20040630
  Receipt Date: 20040319
  Transmission Date: 20050107
  Serious: No
  Sender: FDA-Public Use
  Company Number: 04P-163-0254142-00

PATIENT
  Age: 71 Year
  Sex: Female
  Weight: 52.6173 kg

DRUGS (7)
  1. HUMIRA [Suspect]
     Indication: RHEUMATOID ARTHRITIS
     Dosage: 40 MG, 1 IN 2 WK, SUBCUTANEOUS
     Route: 058
     Dates: start: 20031101, end: 20031101
  2. LEVOTHYROXINE SODIUM [Concomitant]
  3. TOCOPHEROL CONCENTRATE CAP [Concomitant]
  4. ASCORBIC ACID [Concomitant]
  5. VITAMIN B COMPLEX CAP [Concomitant]
  6. DIGOXIN [Concomitant]
  7. ESTROPIPATE [Concomitant]

REACTIONS (2)
  - RASH [None]
  - RASH PUSTULAR [None]
